FAERS Safety Report 9087821 (Version 1)
Quarter: 2013Q1

REPORT INFORMATION
  Report Type: Report from Study
  Country: US (occurrence: US)
  Receive Date: 20130131
  Receipt Date: 20130131
  Transmission Date: 20140127
  Serious: No
  Sender: FDA-Public Use
  Company Number: US-ABBOTT-12P-163-0995276-00

PATIENT
  Age: 54 Year
  Sex: Female

DRUGS (16)
  1. HUMIRA [Suspect]
     Indication: RHEUMATOID ARTHRITIS
     Dates: start: 20120912, end: 20121010
  2. AUGMENTIN [Suspect]
     Indication: PRODUCT USED FOR UNKNOWN INDICATION
  3. PREMARIN [Concomitant]
     Indication: HORMONE REPLACEMENT THERAPY
  4. CYMBALTA [Concomitant]
     Indication: DEPRESSION
  5. VALTREX [Concomitant]
     Indication: PROPHYLAXIS
  6. TOPAMAX [Concomitant]
     Indication: MIGRAINE PROPHYLAXIS
  7. MELOXICAM [Concomitant]
     Indication: PRODUCT USED FOR UNKNOWN INDICATION
  8. MEDROL [Concomitant]
     Indication: PRODUCT USED FOR UNKNOWN INDICATION
  9. METHOTREXATE [Concomitant]
     Indication: PRODUCT USED FOR UNKNOWN INDICATION
     Dosage: 8 TABS WEEKLY
  10. CLONAZEPAM [Concomitant]
     Indication: INSOMNIA
     Dosage: CLONAZEPAM + MELATONIN + BENADRYL
  11. CITRACAL GUMMIES [Concomitant]
     Indication: SUPPLEMENTATION THERAPY
  12. VITAMIN B-12 [Concomitant]
     Indication: SUPPLEMENTATION THERAPY
  13. VITAMIN D [Concomitant]
     Indication: SUPPLEMENTATION THERAPY
  14. BOTOX [Concomitant]
     Indication: MIGRAINE
  15. MELATONIN [Concomitant]
     Indication: INSOMNIA
     Dosage: CLONAZEPAM + MELATONIN + BENADRYL
  16. BENADRYL [Concomitant]
     Indication: INSOMNIA
     Dosage: CLONAZEPAM + MELATONIN + BENADRYL

REACTIONS (5)
  - Animal scratch [Not Recovered/Not Resolved]
  - Urinary tract infection [Not Recovered/Not Resolved]
  - Haemorrhage [Not Recovered/Not Resolved]
  - Fungal infection [Unknown]
  - Haemorrhoids [Unknown]
